FAERS Safety Report 12161570 (Version 2)
Quarter: 2016Q2

REPORT INFORMATION
  Report Type: Report from Study
  Country: JP (occurrence: JP)
  Receive Date: 20160309
  Receipt Date: 20160429
  Transmission Date: 20160815
  Serious: Yes (Death, Hospitalization, Other)
  Sender: FDA-Public Use
  Company Number: JP-ROCHE-1722866

PATIENT
  Age: 77 Year
  Sex: Male
  Weight: 52 kg

DRUGS (23)
  1. AVASTIN [Suspect]
     Active Substance: BEVACIZUMAB
     Indication: GLIOBLASTOMA
     Route: 041
     Dates: start: 20140714, end: 20140714
  2. TEMODAL [Concomitant]
     Active Substance: TEMOZOLOMIDE
     Route: 065
     Dates: end: 20140520
  3. TEMODAL [Concomitant]
     Active Substance: TEMOZOLOMIDE
     Route: 065
     Dates: end: 20140617
  4. AVASTIN [Suspect]
     Active Substance: BEVACIZUMAB
     Route: 041
     Dates: start: 20140804, end: 20140804
  5. AVASTIN [Suspect]
     Active Substance: BEVACIZUMAB
     Route: 041
     Dates: start: 20150305, end: 20150305
  6. AVASTIN [Suspect]
     Active Substance: BEVACIZUMAB
     Route: 041
     Dates: start: 20141106, end: 20141106
  7. AVASTIN [Suspect]
     Active Substance: BEVACIZUMAB
     Route: 041
     Dates: start: 20141204, end: 20141204
  8. AVASTIN [Suspect]
     Active Substance: BEVACIZUMAB
     Route: 041
     Dates: start: 20150108, end: 20150108
  9. AVASTIN [Suspect]
     Active Substance: BEVACIZUMAB
     Route: 041
     Dates: start: 20150319, end: 20150319
  10. AVASTIN [Suspect]
     Active Substance: BEVACIZUMAB
     Route: 041
     Dates: start: 20150402, end: 20150402
  11. AVASTIN [Suspect]
     Active Substance: BEVACIZUMAB
     Route: 041
     Dates: start: 20141006, end: 20141006
  12. AVASTIN [Suspect]
     Active Substance: BEVACIZUMAB
     Route: 041
     Dates: start: 20141218, end: 20141218
  13. AVASTIN [Suspect]
     Active Substance: BEVACIZUMAB
     Route: 041
     Dates: start: 20150219, end: 20150219
  14. AVASTIN [Suspect]
     Active Substance: BEVACIZUMAB
     Route: 041
     Dates: start: 20150430, end: 20150430
  15. AVASTIN [Suspect]
     Active Substance: BEVACIZUMAB
     Route: 041
     Dates: start: 20140922, end: 20140922
  16. AVASTIN [Suspect]
     Active Substance: BEVACIZUMAB
     Route: 041
     Dates: start: 20141020, end: 20141020
  17. AVASTIN [Suspect]
     Active Substance: BEVACIZUMAB
     Route: 041
     Dates: start: 20141120, end: 20141120
  18. AVASTIN [Suspect]
     Active Substance: BEVACIZUMAB
     Route: 041
     Dates: start: 20150122, end: 20150122
  19. PREDONINE [Concomitant]
     Active Substance: PREDNISOLONE\PREDNISOLONE ACETATE\PREDNISOLONE SODIUM SUCCINATE
     Indication: GLIOBLASTOMA
     Route: 048
     Dates: start: 20150514, end: 20150531
  20. AVASTIN [Suspect]
     Active Substance: BEVACIZUMAB
     Route: 041
     Dates: start: 20150205, end: 20150205
  21. AVASTIN [Suspect]
     Active Substance: BEVACIZUMAB
     Route: 041
     Dates: start: 20150416, end: 20150416
  22. AVASTIN [Suspect]
     Active Substance: BEVACIZUMAB
     Route: 041
     Dates: start: 20150514, end: 20150514
  23. TEMODAL [Concomitant]
     Active Substance: TEMOZOLOMIDE
     Indication: GLIOBLASTOMA
     Dosage: 5 DAYS ADMINISTRATION FOLLOWED BY 23 DAYS REST
     Route: 048
     Dates: start: 20140805, end: 20150518

REACTIONS (12)
  - Heat illness [Recovering/Resolving]
  - Malaise [Not Recovered/Not Resolved]
  - Platelet count decreased [Not Recovered/Not Resolved]
  - Hepatic function abnormal [Not Recovered/Not Resolved]
  - Urinary tract infection [Recovering/Resolving]
  - Seizure [Not Recovered/Not Resolved]
  - Cholecystitis acute [Recovering/Resolving]
  - Bone cancer metastatic [Not Recovered/Not Resolved]
  - Gallbladder cancer [Fatal]
  - Hepatic cancer metastatic [Fatal]
  - Lung cancer metastatic [Fatal]
  - Disseminated intravascular coagulation [Not Recovered/Not Resolved]

NARRATIVE: CASE EVENT DATE: 20140816
